FAERS Safety Report 9395096 (Version 5)
Quarter: 2014Q1

REPORT INFORMATION
  Report Type: Spontaneous
  Country: US (occurrence: US)
  Receive Date: 20130711
  Receipt Date: 20140205
  Transmission Date: 20141002
  Serious: Yes (Other)
  Sender: FDA-Public Use
  Company Number: US-PFIZER INC-2013173210

PATIENT
  Age: 70 Year
  Sex: Male

DRUGS (14)
  1. SUTENT [Suspect]
     Indication: METASTATIC RENAL CELL CARCINOMA
     Dosage: 50 MG, CYCLIC (QD 4 WEEKS ON 2 WEEKS OFF)
     Route: 048
     Dates: start: 201205
  2. SUTENT [Suspect]
     Dosage: 50 MG, UNK
     Route: 048
     Dates: start: 20120929, end: 201303
  3. SUTENT [Suspect]
     Dosage: 37.5 MG, 1X/DAY, QD X 4WEEKS ON/ 2 WKS OFF)
     Route: 048
     Dates: start: 20130628
  4. SUTENT [Suspect]
     Dosage: 37.5 MG, DAILY (4 WEEKS ON, THEN 2 WEEKS OFF)
     Route: 048
     Dates: start: 20131212, end: 20140130
  5. LOSARTAN [Concomitant]
     Dosage: UNK
  6. POTASSIUM [Concomitant]
     Dosage: UNK
  7. SYNTHROID [Concomitant]
     Dosage: UNK
  8. OMEPRAZOLE [Concomitant]
     Dosage: UNK
  9. CLONAZEPAM [Concomitant]
     Dosage: UNK
  10. AMLODIPINE [Concomitant]
     Dosage: UNK
  11. VITAMIN D [Concomitant]
     Dosage: UNK
  12. PRILOSEC [Concomitant]
     Dosage: UNK
  13. KLONOPIN [Concomitant]
     Dosage: UNK
  14. NORVASC [Concomitant]
     Dosage: UNK

REACTIONS (7)
  - Hyperparathyroidism [Unknown]
  - White blood cell count decreased [Unknown]
  - Thyroid disorder [Unknown]
  - Bone marrow disorder [Unknown]
  - Disease progression [Unknown]
  - Metastatic renal cell carcinoma [Unknown]
  - Blood pressure increased [Unknown]
